FAERS Safety Report 5310323-X (Version None)
Quarter: 2007Q1

REPORT INFORMATION
  Report Type: 
  Country: None (occurrence: None)
  Receive Date: 20070201
  Receipt Date: 20060221
  Transmission Date: 20070707
  Serious: Yes (Hospitalization)
  Sender: FDA-Public Use
  Company Number: US-2006-002146

PATIENT
  Age: 51 Year
  Sex: Female
  Weight: 70 kg

DRUGS (17)
  1. MIRENA [Suspect]
     Indication: CONTRACEPTION
     Dosage: 20 UG/DAY, CONT, INTRA-UTERINE
     Route: 015
     Dates: start: 20051102, end: 20051207
  2. OXYTROL [Concomitant]
  3. ZYRTEC [Concomitant]
  4. SINGULAIR [Concomitant]
  5. TEGRETOL [Concomitant]
  6. BACLOFEN [Concomitant]
  7. COPAXONE [Concomitant]
  8. FLONASE [Concomitant]
  9. ALBUTEROL [Concomitant]
  10. ADVAIR DISKUS 100/50 [Concomitant]
  11. ASCORBIC ACID [Concomitant]
  12. CALCIUM CITRATE (CALCIUM CITRATE) [Concomitant]
  13. MULTIVITAMINS (RETINOL, PANTHENOL) [Concomitant]
  14. STOOL SOFTENER (DOCUSATE SODIUM) [Concomitant]
  15. TYLENOL [Concomitant]
  16. BENADRYL [Concomitant]
  17. SUDAFED 12 HOUR [Concomitant]

REACTIONS (1)
  - UTERINE PERFORATION [None]
